FAERS Safety Report 25431637 (Version 1)
Quarter: 2025Q2

REPORT INFORMATION
  Report Type: Spontaneous
  Country: JP (occurrence: JP)
  Receive Date: 20250613
  Receipt Date: 20250613
  Transmission Date: 20250717
  Serious: Yes (Life-Threatening, Hospitalization)
  Sender: ACCORD
  Company Number: JP-Accord-489665

PATIENT
  Age: 74 Year
  Sex: Male

DRUGS (10)
  1. MYCOPHENOLATE MOFETIL [Suspect]
     Active Substance: MYCOPHENOLATE MOFETIL
     Indication: Drug-induced liver injury
  2. METHYLPREDNISOLONE [Suspect]
     Active Substance: METHYLPREDNISOLONE
     Indication: Drug-induced liver injury
  3. CARBOPLATIN [Concomitant]
     Active Substance: CARBOPLATIN
     Indication: Lung squamous cell carcinoma stage III
  4. NIVOLUMAB [Concomitant]
     Active Substance: NIVOLUMAB
     Indication: Lung squamous cell carcinoma stage III
  5. PACLITAXEL [Concomitant]
     Active Substance: PACLITAXEL
     Indication: Lung squamous cell carcinoma stage III
  6. PACLITAXEL [Concomitant]
     Active Substance: PACLITAXEL
     Indication: Metastases to lymph nodes
  7. NIVOLUMAB [Concomitant]
     Active Substance: NIVOLUMAB
     Indication: Metastases to lymph nodes
  8. CARBOPLATIN [Concomitant]
     Active Substance: CARBOPLATIN
     Indication: Metastases to lymph nodes
  9. METHYLPREDNISOLONE [Suspect]
     Active Substance: METHYLPREDNISOLONE
     Indication: Cholangitis sclerosing
  10. MYCOPHENOLATE MOFETIL [Suspect]
     Active Substance: MYCOPHENOLATE MOFETIL
     Indication: Cholangitis sclerosing

REACTIONS (5)
  - Neoplasm progression [Recovered/Resolved]
  - Pulmonary air leakage [Recovered/Resolved]
  - Disease recurrence [Recovered/Resolved]
  - Empyema [Recovered/Resolved]
  - Bronchial fistula [Recovered/Resolved]
